FAERS Safety Report 8223420-6 (Version None)
Quarter: 2012Q1

REPORT INFORMATION
  Report Type: 
  Country: None (occurrence: None)
  Receive Date: 20120321
  Receipt Date: 20120316
  Transmission Date: 20120608
  Serious: Yes (Life-Threatening, Other)
  Sender: FDA-Public Use
  Company Number: US-CELGENEUS-163-21880-12021630

PATIENT
  Sex: Female
  Weight: 62.198 kg

DRUGS (10)
  1. SALSALATE [Concomitant]
     Dosage: 1 TABLET
     Route: 048
     Dates: start: 20110101
  2. DIOVAN [Concomitant]
     Dosage: 150 MILLIGRAM
     Route: 048
  3. HYDROCODONE [Concomitant]
     Dosage: 5/500
     Route: 048
     Dates: start: 20110101
  4. FISH OIL [Concomitant]
     Dosage: 1 CAPSULE
     Route: 048
     Dates: start: 20080101
  5. REVLIMID [Suspect]
     Dosage: 10 MILLIGRAM
     Route: 048
     Dates: start: 20110224
  6. REVLIMID [Suspect]
     Dosage: 10 MILLIGRAM
     Route: 048
     Dates: start: 20110301
  7. LIDODERM [Concomitant]
     Dosage: 5 PERCENT
     Route: 062
     Dates: start: 20110101
  8. DEXAMETHASONE [Concomitant]
     Dosage: 4 MILLIGRAM
     Route: 048
     Dates: start: 20110214
  9. REVLIMID [Suspect]
     Indication: MULTIPLE MYELOMA
     Dosage: 25 MILLIGRAM
     Route: 048
     Dates: start: 20110209, end: 20110201
  10. ASPIRIN [Concomitant]
     Dosage: 325 MILLIGRAM
     Route: 048
     Dates: start: 20090101

REACTIONS (1)
  - LUNG NEOPLASM MALIGNANT [None]
